FAERS Safety Report 17016727 (Version 6)
Quarter: 2020Q2

REPORT INFORMATION
  Report Type: Spontaneous
  Country: US (occurrence: US)
  Receive Date: 20191111
  Receipt Date: 20200514
  Transmission Date: 20200713
  Serious: Yes (Other)
  Sender: FDA-Public Use
  Company Number: US-PFIZER INC-2019483400

PATIENT
  Age: 45 Year
  Sex: Female
  Weight: 41.73 kg

DRUGS (4)
  1. DEPO-PROVERA [Concomitant]
     Active Substance: MEDROXYPROGESTERONE ACETATE
     Dosage: UNK
  2. PERCOCET [OXYCODONE HYDROCHLORIDE;OXYCODONE TEREPHTHALATE;PARACETAMOL] [Concomitant]
     Active Substance: ACETAMINOPHEN\OXYCODONE HYDROCHLORIDE\OXYCODONE TEREPHTHALATE
     Indication: PAIN
     Dosage: UNK, EVERY 4 HRS (OXYCODONE HYDROCHLORIDE-10MG/ACETAMINOPHEN-325MG; TAKE ONE 6 TIMES DAILY BY MOUTH)
     Route: 048
  3. CELEBREX [Suspect]
     Active Substance: CELECOXIB
     Indication: ARTHRITIS
     Dosage: 100 MG, 2X/DAY (100MG TAKE ONE TWICE DAILY BY MOUTH)
     Route: 048
     Dates: end: 20200426
  4. CELEBREX [Suspect]
     Active Substance: CELECOXIB
     Indication: MUSCULOSKELETAL PAIN

REACTIONS (7)
  - Visual impairment [Unknown]
  - Cystitis [Unknown]
  - Salpingitis [Unknown]
  - Malaise [Unknown]
  - Tendon rupture [Not Recovered/Not Resolved]
  - Limb injury [Unknown]
  - Osteoarthritis [Unknown]
